FAERS Safety Report 15650032 (Version 1)
Quarter: 2018Q4

REPORT INFORMATION
  Report Type: Spontaneous
  Country: GB (occurrence: GB)
  Receive Date: 20181123
  Receipt Date: 20181123
  Transmission Date: 20190205
  Serious: Yes (Other)
  Sender: FDA-Public Use
  Company Number: GB-AUROBINDO-AUR-APL-2018-056640

PATIENT
  Age: 66 Year
  Sex: Male
  Weight: 66.67 kg

DRUGS (1)
  1. TAMSULOSIN [Suspect]
     Active Substance: TAMSULOSIN
     Indication: URINE FLOW DECREASED
     Dosage: 400 MICROGRAM
     Route: 048
     Dates: start: 20181029, end: 20181031

REACTIONS (2)
  - Abdominal discomfort [Unknown]
  - Diarrhoea [Unknown]

NARRATIVE: CASE EVENT DATE: 20181030
